FAERS Safety Report 5910402-X (Version None)
Quarter: 2008Q4

REPORT INFORMATION
  Report Type: 
  Country: None (occurrence: None)
  Receive Date: 20081007
  Receipt Date: 20080122
  Transmission Date: 20090506
  Serious: No
  Sender: FDA-Public Use
  Company Number: US-ASTRAZENECA-2008UW01720

PATIENT
  Age: 49 Year
  Sex: Female

DRUGS (1)
  1. ARIMIDEX [Suspect]
     Route: 048

REACTIONS (3)
  - HAIR TEXTURE ABNORMAL [None]
  - HYPOAESTHESIA [None]
  - SKIN WRINKLING [None]
